FAERS Safety Report 14325515 (Version 1)
Quarter: 2017Q4

REPORT INFORMATION
  Report Type: Spontaneous
  Country: AT (occurrence: AT)
  Receive Date: 20171226
  Receipt Date: 20171226
  Transmission Date: 20180321
  Serious: Yes (Death, Hospitalization, Other)
  Sender: FDA-Public Use
  Company Number: AT-MYLANLABS-2017M1081865

PATIENT
  Age: 62 Year
  Sex: Male

DRUGS (1)
  1. HEPARIN [Suspect]
     Active Substance: HEPARIN SODIUM
     Indication: PULMONARY EMBOLISM
     Dosage: 550000 IU, UNK
     Route: 040

REACTIONS (10)
  - Dizziness [Fatal]
  - Overdose [Fatal]
  - Drug administration error [Fatal]
  - Automatism [Fatal]
  - Cerebral haemorrhage [Fatal]
  - Depressed level of consciousness [Fatal]
  - Seizure [Fatal]
  - Respiratory arrest [Fatal]
  - Coagulopathy [Fatal]
  - Headache [Fatal]
